FAERS Safety Report 6064441-1 (Version None)
Quarter: 2009Q1

REPORT INFORMATION
  Report Type: 
  Country: None (occurrence: None)
  Receive Date: 20090130
  Receipt Date: 20090116
  Transmission Date: 20090719
  Serious: Yes (Other)
  Sender: FDA-Public Use
  Company Number: PHEH2008US02445

PATIENT
  Age: 74 Year
  Sex: Male

DRUGS (1)
  1. VISUDYNE [Suspect]
     Dates: start: 20080303, end: 20080303

REACTIONS (2)
  - VISION BLURRED [None]
  - VISUAL ACUITY REDUCED [None]
